APPROVED DRUG PRODUCT: MECLIZINE HYDROCHLORIDE
Active Ingredient: MECLIZINE HYDROCHLORIDE
Strength: 25MG
Dosage Form/Route: TABLET;ORAL
Application: A087620 | Product #001
Applicant: VANGARD LABORATORIES INC DIV MIDWAY MEDICAL CO
Approved: Jan 4, 1982 | RLD: No | RS: No | Type: DISCN